FAERS Safety Report 11227736 (Version 1)
Quarter: 2015Q2

REPORT INFORMATION
  Report Type: Spontaneous
  Country: JP (occurrence: JP)
  Receive Date: 20150630
  Receipt Date: 20150630
  Transmission Date: 20150821
  Serious: Yes (Death)
  Sender: FDA-Public Use
  Company Number: JP-TEVA-573696ISR

PATIENT
  Age: 61 Year
  Sex: Female
  Weight: 43 kg

DRUGS (3)
  1. MORPHINE HYDROCHLORIDE HYDRATE [Concomitant]
     Active Substance: MORPHINE HYDROCHLORIDE
     Indication: CANCER PAIN
     Dosage: 24 MILLIGRAM DAILY;
     Route: 042
     Dates: start: 20141204, end: 20141204
  2. E-FEN BUCCAL [Suspect]
     Active Substance: FENTANYL CITRATE
     Indication: BREAKTHROUGH PAIN
     Dosage: DAILY DOSE: 50-100 MICRGRAM
     Route: 002
     Dates: start: 20141204, end: 20141205
  3. FENTOS [Concomitant]
     Active Substance: FENTANYL
     Indication: CANCER PAIN
     Dosage: 1 MILLIGRAM DAILY;
     Route: 062
     Dates: start: 20141204, end: 20141205

REACTIONS (1)
  - Ovarian cancer [Fatal]

NARRATIVE: CASE EVENT DATE: 20141206
